APPROVED DRUG PRODUCT: ESTRADIOL
Active Ingredient: ESTRADIOL
Strength: 2MG
Dosage Form/Route: TABLET;ORAL
Application: A040197 | Product #003 | TE Code: AB
Applicant: BARR LABORATORIES INC
Approved: Oct 22, 1997 | RLD: No | RS: Yes | Type: RX